FAERS Safety Report 9548601 (Version 2)
Quarter: 2013Q4

REPORT INFORMATION
  Report Type: Spontaneous
  Country: US (occurrence: US)
  Receive Date: 20130924
  Receipt Date: 20131007
  Transmission Date: 20140711
  Serious: No
  Sender: FDA-Public Use
  Company Number: US-009507513-1309USA011033

PATIENT
  Sex: Female

DRUGS (2)
  1. DR. SCHOLL^S ONE STEP CORN REMOVERS [Suspect]
     Indication: PRODUCT USED FOR UNKNOWN INDICATION
     Dosage: UNK, UNKNOWN
     Route: 061
  2. DR. SCHOLL^S ONE STEP CORN REMOVERS [Suspect]
     Dosage: UNK, UNKNOWN
     Route: 061

REACTIONS (3)
  - Product lot number issue [Unknown]
  - Product adhesion issue [Unknown]
  - Circumstance or information capable of leading to medication error [Unknown]
